FAERS Safety Report 16432970 (Version 1)
Quarter: 2019Q2

REPORT INFORMATION
  Report Type: Spontaneous
  Country: US (occurrence: US)
  Receive Date: 20190614
  Receipt Date: 20190614
  Transmission Date: 20190711
  Serious: No
  Sender: FDA-Public Use
  Company Number: US-JNJFOC-20170116359

PATIENT
  Age: 66 Year
  Sex: Male
  Weight: 106 kg

DRUGS (4)
  1. LANSOPRAZOLE. [Concomitant]
     Active Substance: LANSOPRAZOLE
     Indication: REFLUX GASTRITIS
  2. IMBRUVICA [Suspect]
     Active Substance: IBRUTINIB
     Indication: B-CELL SMALL LYMPHOCYTIC LYMPHOMA
     Route: 048
     Dates: start: 20170113
  3. PRAVASTATIN. [Concomitant]
     Active Substance: PRAVASTATIN
     Indication: BLOOD CHOLESTEROL ABNORMAL
  4. LOSARTAN. [Concomitant]
     Active Substance: LOSARTAN
     Indication: BLOOD PRESSURE ABNORMAL

REACTIONS (2)
  - Diarrhoea [Not Recovered/Not Resolved]
  - Upper respiratory tract infection [Unknown]

NARRATIVE: CASE EVENT DATE: 20170113
